FAERS Safety Report 23747005 (Version 1)
Quarter: 2024Q2

REPORT INFORMATION
  Report Type: Spontaneous
  Country: ES (occurrence: ES)
  Receive Date: 20240416
  Receipt Date: 20240416
  Transmission Date: 20240716
  Serious: Yes (Other)
  Sender: FDA-Public Use
  Company Number: ES-BAUSCH-BL-2024-005930

PATIENT
  Age: 27 Year
  Sex: Male
  Weight: 60 kg

DRUGS (2)
  1. RIFAXIMIN [Suspect]
     Active Substance: RIFAXIMIN
     Indication: Gastrointestinal bacterial overgrowth
     Dosage: 400 MG EVERY 8 HOURS PRESCRIBED FOR 14 DAYS
     Route: 048
     Dates: start: 20240131, end: 20240210
  2. NEOMYCIN SULFATE [Suspect]
     Active Substance: NEOMYCIN SULFATE
     Indication: Gastrointestinal bacterial overgrowth
     Dosage: 30 TABLETS: 500 MG EVERY 12 HOURS PRESCRIBED FOR 14 DAYS
     Route: 048
     Dates: start: 20240131, end: 20240210

REACTIONS (2)
  - Tinnitus [Not Recovered/Not Resolved]
  - Deafness [Recovered/Resolved]

NARRATIVE: CASE EVENT DATE: 20240210
